FAERS Safety Report 6068980-9 (Version None)
Quarter: 2009Q1

REPORT INFORMATION
  Report Type: 
  Country: None (occurrence: None)
  Receive Date: 20090206
  Receipt Date: 20090130
  Transmission Date: 20090719
  Serious: Yes (Other)
  Sender: FDA-Public Use
  Company Number: JP-MERCK-0902USA00500

PATIENT
  Age: 68 Year
  Sex: Female

DRUGS (3)
  1. FOSAMAX [Suspect]
     Indication: OSTEOPOROSIS
     Route: 048
     Dates: end: 20081118
  2. MUCOSTA [Suspect]
     Indication: OSTEOARTHRITIS
     Route: 065
     Dates: end: 20081118
  3. VOLTAREN [Suspect]
     Indication: OSTEOARTHRITIS
     Route: 048
     Dates: end: 20081118

REACTIONS (1)
  - HEPATIC FUNCTION ABNORMAL [None]
